FAERS Safety Report 13412012 (Version 5)
Quarter: 2022Q1

REPORT INFORMATION
  Report Type: Spontaneous
  Country: US (occurrence: US)
  Receive Date: 20170406
  Receipt Date: 20220323
  Transmission Date: 20220423
  Serious: Yes (Hospitalization, Other)
  Sender: FDA-Public Use
  Company Number: US-JNJFOC-20170316491

PATIENT
  Age: 23 Year
  Sex: Male

DRUGS (9)
  1. RISPERDAL [Suspect]
     Active Substance: RISPERIDONE
     Indication: Schizoaffective disorder
     Route: 048
     Dates: start: 20060131, end: 20060330
  2. RISPERDAL [Suspect]
     Active Substance: RISPERIDONE
     Indication: Affective disorder
     Route: 048
     Dates: start: 20061103, end: 20070213
  3. RISPERDAL [Suspect]
     Active Substance: RISPERIDONE
     Route: 048
     Dates: start: 20070715, end: 20070830
  4. RISPERDAL [Suspect]
     Active Substance: RISPERIDONE
     Route: 048
     Dates: start: 20080208, end: 20080530
  5. RISPERDAL [Suspect]
     Active Substance: RISPERIDONE
     Route: 048
     Dates: start: 20081111, end: 20101001
  6. RISPERDAL [Suspect]
     Active Substance: RISPERIDONE
     Dosage: 2 MG TAKE ONE HALF TABLET BY MOUTH EVERY MORNING AND AT BEDTIME THEN TAKE ONE EVERY MORNING AND AT B
     Route: 048
  7. RISPERIDONE [Suspect]
     Active Substance: RISPERIDONE
     Indication: Schizoaffective disorder
     Dosage: IN VARYING DOSES OF 2 MG, 3MG AND 4 MG
     Route: 048
     Dates: start: 20060214, end: 20101001
  8. CANNABIS SATIVA SUBSP. INDICA TOP [Suspect]
     Active Substance: CANNABIS SATIVA SUBSP. INDICA TOP
     Indication: Product used for unknown indication
     Route: 065
  9. MIRTAZAPINE [Suspect]
     Active Substance: MIRTAZAPINE
     Indication: Sleep disorder
     Route: 065

REACTIONS (10)
  - Substance abuse [Unknown]
  - Accidental overdose [Unknown]
  - Mental impairment [Unknown]
  - Emotional disorder [Unknown]
  - Laziness [Unknown]
  - Product dose omission issue [Unknown]
  - Gynaecomastia [Unknown]
  - Tremor [Recovering/Resolving]
  - Off label use [Unknown]
  - Wrong technique in product usage process [Unknown]

NARRATIVE: CASE EVENT DATE: 20070601
